FAERS Safety Report 16891962 (Version 1)
Quarter: 2019Q4

REPORT INFORMATION
  Report Type: Spontaneous
  Country: US (occurrence: US)
  Receive Date: 20190813
  Receipt Date: 20190813
  Transmission Date: 20200122
  Serious: No
  Sender: FDA-Public Use
  Company Number: None

PATIENT
  Age: 63 Year
  Sex: Male

DRUGS (1)
  1. HARVONI [Suspect]
     Active Substance: LEDIPASVIR\SOFOSBUVIR
     Dates: start: 20190727, end: 20190810

REACTIONS (4)
  - Dizziness [None]
  - Myalgia [None]
  - Vision blurred [None]
  - Muscular weakness [None]

NARRATIVE: CASE EVENT DATE: 20190729
